FAERS Safety Report 6813058-7 (Version None)
Quarter: 2010Q3

REPORT INFORMATION
  Report Type: 
  Country: None (occurrence: None)
  Receive Date: 20100701
  Receipt Date: 20100629
  Transmission Date: 20110219
  Serious: Yes (Other)
  Sender: FDA-Public Use
  Company Number: US-BRISTOL-MYERS SQUIBB COMPANY-15171309

PATIENT
  Sex: Male

DRUGS (2)
  1. GLUCOPHAGE [Suspect]
  2. LANTUS [Concomitant]

REACTIONS (1)
  - MYOCARDIAL INFARCTION [None]
